FAERS Safety Report 5449892-8 (Version None)
Quarter: 2007Q3

REPORT INFORMATION
  Report Type: 
  Country: None (occurrence: None)
  Receive Date: 20070910
  Receipt Date: 20070910
  Transmission Date: 20080115
  Serious: Yes (Hospitalization)
  Sender: FDA-Public Use
  Company Number: None

PATIENT
  Sex: Female
  Weight: 92 kg

DRUGS (3)
  1. CARBOPLATIN [Suspect]
     Dosage: 503 MG
     Dates: start: 20070806, end: 20070806
  2. TAXOL [Suspect]
     Dosage: 350 MG
     Dates: end: 20070806
  3. ALEVE [Concomitant]

REACTIONS (2)
  - ABDOMINAL PAIN [None]
  - ASCITES [None]
